FAERS Safety Report 9023373 (Version 2)
Quarter: 2013Q1

REPORT INFORMATION
  Report Type: Spontaneous
  Country: US (occurrence: US)
  Receive Date: 20130117
  Receipt Date: 20130123
  Transmission Date: 20140127
  Serious: Yes (Other)
  Sender: FDA-Public Use
  Company Number: US-ROCHE-1180619

PATIENT
  Sex: Female
  Weight: 133.02 kg

DRUGS (3)
  1. RITUXAN [Suspect]
     Indication: PRODUCT USED FOR UNKNOWN INDICATION
     Dosage: LAST TREATMENT 18/JUL/2012.
     Route: 065
  2. METHOTREXATE [Concomitant]
  3. ARAVA [Concomitant]

REACTIONS (3)
  - Renal failure [Unknown]
  - Swelling [Unknown]
  - Musculoskeletal stiffness [Unknown]
